FAERS Safety Report 21365852 (Version 1)
Quarter: 2022Q3

REPORT INFORMATION
  Report Type: Spontaneous
  Country: US (occurrence: US)
  Receive Date: 20220922
  Receipt Date: 20220922
  Transmission Date: 20221027
  Serious: Yes (Other)
  Sender: FDA-Public Use
  Company Number: US-MYLANLABS-2022M1095582

PATIENT
  Sex: Male

DRUGS (1)
  1. SEMGLEE (INSULIN GLARGINE-YFGN) [Suspect]
     Active Substance: INSULIN GLARGINE-YFGN
     Indication: Type 2 diabetes mellitus
     Dosage: 66 INTERNATIONAL UNIT, BID (66 UNITS TWICE A DAY)
     Route: 058

REACTIONS (3)
  - Lipodystrophy acquired [Unknown]
  - Device issue [Unknown]
  - Needle issue [Unknown]
